FAERS Safety Report 15127331 (Version 1)
Quarter: 2018Q3

REPORT INFORMATION
  Report Type: Spontaneous
  Country: IT (occurrence: IT)
  Receive Date: 20180710
  Receipt Date: 20180710
  Transmission Date: 20181010
  Serious: Yes (Other)
  Sender: FDA-Public Use
  Company Number: IT-PFIZER INC-2018276845

PATIENT
  Age: 83 Year
  Sex: Female

DRUGS (5)
  1. METHOTREXATE SODIUM. [Suspect]
     Active Substance: METHOTREXATE SODIUM
     Indication: CHRONIC MYELOID LEUKAEMIA
     Dates: start: 20170101, end: 20170627
  2. ALLOPURINOL. [Concomitant]
     Active Substance: ALLOPURINOL
  3. PLASIL [Concomitant]
     Active Substance: METOCLOPRAMIDE HYDROCHLORIDE
  4. ONCO CARBIDE [Suspect]
     Active Substance: HYDROXYUREA
     Dosage: 20 MG, 1X/DAY
     Route: 048
     Dates: start: 20170101, end: 20170627
  5. LEVOXACIN [Concomitant]
     Active Substance: LEVOFLOXACIN
     Dosage: 500 MG, UNK

REACTIONS (2)
  - Confusional state [Unknown]
  - Pancytopenia [Unknown]

NARRATIVE: CASE EVENT DATE: 20170627
